FAERS Safety Report 9443296 (Version 7)
Quarter: 2015Q4

REPORT INFORMATION
  Report Type: Spontaneous
  Country: US (occurrence: US)
  Receive Date: 20130806
  Receipt Date: 20151221
  Transmission Date: 20160305
  Serious: Yes (Death, Other)
  Sender: FDA-Public Use
  Company Number: US-GLAXOSMITHKLINE-A1035431A

PATIENT
  Age: 68 Year
  Sex: Male

DRUGS (15)
  1. INDOMETHACIN. [Concomitant]
     Active Substance: INDOMETHACIN
  2. GLIMEPIRIDE. [Concomitant]
     Active Substance: GLIMEPIRIDE
  3. ENALAPRIL [Concomitant]
     Active Substance: ENALAPRIL
  4. LOVASTATIN. [Concomitant]
     Active Substance: LOVASTATIN
  5. HYDROCODONE [Concomitant]
     Active Substance: HYDROCODONE
  6. SPIRIVA [Concomitant]
     Active Substance: TIOTROPIUM BROMIDE MONOHYDRATE
  7. FLUOXETINE [Concomitant]
     Active Substance: FLUOXETINE HYDROCHLORIDE
  8. METOPROLOL [Concomitant]
     Active Substance: METOPROLOL
  9. LEVOTHYROXINE. [Concomitant]
     Active Substance: LEVOTHYROXINE
  10. ASPIRIN. [Concomitant]
     Active Substance: ASPIRIN
  11. METFORMIN [Concomitant]
     Active Substance: METFORMIN HYDROCHLORIDE
  12. FUROSEMIDE. [Concomitant]
     Active Substance: FUROSEMIDE
  13. PROAIR HFA [Concomitant]
     Active Substance: ALBUTEROL SULFATE
  14. ADVAIR DISKUS [Suspect]
     Active Substance: FLUTICASONE PROPIONATE\SALMETEROL XINAFOATE
     Indication: CHRONIC OBSTRUCTIVE PULMONARY DISEASE
     Dosage: 1 PUFF(S), BID
     Route: 055
     Dates: start: 2003
  15. ADVAIR DISKUS [Suspect]
     Active Substance: FLUTICASONE PROPIONATE\SALMETEROL XINAFOATE
     Dosage: UNK
     Dates: start: 2003

REACTIONS (11)
  - Chronic obstructive pulmonary disease [Fatal]
  - Speech disorder [Unknown]
  - Adverse event [Unknown]
  - Death [Fatal]
  - Choking [Unknown]
  - Pneumonia [Unknown]
  - Paranasal sinus hypersecretion [Unknown]
  - Dysphonia [Unknown]
  - Oropharyngeal pain [Not Recovered/Not Resolved]
  - Throat cancer [Unknown]
  - Throat irritation [Unknown]

NARRATIVE: CASE EVENT DATE: 2009
